FAERS Safety Report 18742522 (Version 2)
Quarter: 2021Q1

REPORT INFORMATION
  Report Type: Spontaneous
  Country: US (occurrence: US)
  Receive Date: 20210114
  Receipt Date: 20210225
  Transmission Date: 20210419
  Serious: Yes (Hospitalization)
  Sender: FDA-Public Use
  Company Number: US-TEVA-2021-US-1867305

PATIENT
  Age: 40 Year
  Sex: Female

DRUGS (2)
  1. GLATIRAMER?ACETATE [Suspect]
     Active Substance: GLATIRAMER ACETATE
     Indication: MULTIPLE SCLEROSIS
     Route: 065
     Dates: start: 2016
  2. INTERFERON?BETA [Suspect]
     Active Substance: INTERFERON BETA
     Indication: MULTIPLE SCLEROSIS
     Route: 065
     Dates: end: 2016

REACTIONS (1)
  - Autoimmune hepatitis [Recovering/Resolving]

NARRATIVE: CASE EVENT DATE: 2019
